FAERS Safety Report 9512958 (Version 1)
Quarter: 2013Q3

REPORT INFORMATION
  Report Type: Spontaneous
  Country: US (occurrence: US)
  Receive Date: 20130910
  Receipt Date: 20130910
  Transmission Date: 20140515
  Serious: Yes (Other)
  Sender: FDA-Public Use
  Company Number: US-JNJFOC-20130903079

PATIENT
  Age: 41 Year
  Sex: Female

DRUGS (4)
  1. TOPAMAX [Suspect]
     Indication: CONVULSION PROPHYLAXIS
     Dosage: STRENGTH: 50MG
     Route: 048
     Dates: start: 201301, end: 20130831
  2. TOPAMAC [Suspect]
     Indication: CONVULSION PROPHYLAXIS
     Dosage: STRENGTH: 50MG
     Route: 048
     Dates: start: 2013
  3. ALPRAZOLAM [Concomitant]
     Indication: ANXIETY
     Route: 048
  4. TRAMADOL [Concomitant]
     Indication: PAIN
     Route: 048
     Dates: start: 201309

REACTIONS (1)
  - Migraine [Not Recovered/Not Resolved]
